FAERS Safety Report 7429975-3 (Version None)
Quarter: 2011Q2

REPORT INFORMATION
  Report Type: 
  Country: None (occurrence: None)
  Receive Date: 20110421
  Receipt Date: 20110409
  Transmission Date: 20111010
  Serious: Yes (Hospitalization, Other)
  Sender: FDA-Public Use
  Company Number: US-PFIZER INC-2011078474

PATIENT
  Sex: Female
  Weight: 103 kg

DRUGS (2)
  1. DILANTIN [Concomitant]
     Indication: CONVULSION
     Dosage: UNK
  2. PRISTIQ [Suspect]
     Indication: DEPRESSION
     Dosage: 50 MG, 1X/DAY
     Route: 048
     Dates: start: 20100601, end: 20110301

REACTIONS (8)
  - INSOMNIA [None]
  - HALLUCINATION [None]
  - THROMBOSIS [None]
  - MOOD ALTERED [None]
  - SUICIDAL IDEATION [None]
  - WEIGHT INCREASED [None]
  - SWELLING [None]
  - DEPRESSION [None]
